FAERS Safety Report 20767592 (Version 1)
Quarter: 2022Q2

REPORT INFORMATION
  Report Type: Spontaneous
  Country: CN (occurrence: CN)
  Receive Date: 20220429
  Receipt Date: 20220429
  Transmission Date: 20220721
  Serious: Yes (Hospitalization, Other)
  Sender: FDA-Public Use
  Company Number: CN-ALKEM LABORATORIES LIMITED-CN-ALKEM-2022-03826

PATIENT
  Age: 75 Year
  Sex: Female

DRUGS (1)
  1. OLANZAPINE [Suspect]
     Active Substance: OLANZAPINE
     Indication: Suicidal ideation
     Dosage: 5 MILLIGRAM/DAY
     Route: 065
     Dates: start: 201203

REACTIONS (2)
  - Torsade de pointes [Unknown]
  - Hypokalaemia [Recovered/Resolved]
